FAERS Safety Report 6406417-8 (Version None)
Quarter: 2009Q4

REPORT INFORMATION
  Report Type: 
  Country: None (occurrence: None)
  Receive Date: 20091014
  Receipt Date: 20091005
  Transmission Date: 20100525
  Serious: Yes (Other)
  Sender: FDA-Public Use
  Company Number: TRP_06478_2009

PATIENT
  Sex: Male

DRUGS (3)
  1. RIBAVIRIN [Suspect]
     Indication: HEPATITIS C
     Dosage: 1000 MG, DAILY
     Dates: start: 20081003
  2. PEGASYS [Suspect]
     Indication: HEPATITIS C
     Dosage: 180 UG 1X WEEK
     Dates: start: 20081003
  3. PROCRIT [Suspect]
     Indication: DRUG USE FOR UNKNOWN INDICATION
     Dosage: DF
     Dates: end: 20090827

REACTIONS (8)
  - AMNESIA [None]
  - ANGIOPATHY [None]
  - DYSPNOEA [None]
  - HAEMOGLOBIN DECREASED [None]
  - HEADACHE [None]
  - PRURITUS [None]
  - THROMBOSIS [None]
  - TREMOR [None]
